FAERS Safety Report 22142504 (Version 2)
Quarter: 2023Q2

REPORT INFORMATION
  Report Type: Spontaneous
  Country: JP (occurrence: JP)
  Receive Date: 20230327
  Receipt Date: 20230403
  Transmission Date: 20230722
  Serious: Yes (Other)
  Sender: FDA-Public Use
  Company Number: JP-002147023-NVSJ2022JP094985

PATIENT
  Age: 72 Year
  Sex: Male

DRUGS (11)
  1. CYCLOSPORINE [Suspect]
     Active Substance: CYCLOSPORINE
     Indication: Pemphigoid
     Dosage: UNK
     Route: 048
  2. PREDNISOLONE [Suspect]
     Active Substance: PREDNISOLONE
     Indication: Pemphigoid
     Dosage: 1 MG/KG
     Route: 048
  3. PREDNISOLONE [Suspect]
     Active Substance: PREDNISOLONE
     Dosage: TAPERED TO 35 MG (0.7 MG/KG)
     Route: 048
  4. PREDNISOLONE [Suspect]
     Active Substance: PREDNISOLONE
     Dosage: PSL WAS TAPERED.
     Route: 048
  5. PREDNISOLONE [Suspect]
     Active Substance: PREDNISOLONE
     Dosage: PSL WAS TAPERED TO 10 MG.
     Route: 048
  6. PREDNISOLONE [Suspect]
     Active Substance: PREDNISOLONE
     Dosage: UNK
     Route: 048
  7. NICOTINAMIDE [Concomitant]
     Active Substance: NIACINAMIDE
     Indication: Pemphigoid
     Dosage: 1500 MG
     Route: 065
  8. MINOCYCLINE [Concomitant]
     Active Substance: MINOCYCLINE HYDROCHLORIDE
     Indication: Pemphigoid
     Dosage: 200 MG
     Route: 048
  9. DAPSONE [Concomitant]
     Active Substance: DAPSONE
     Indication: Pemphigoid
     Dosage: 50 MG
     Route: 058
  10. DUPLAMIN [Concomitant]
     Indication: Pemphigoid
     Dosage: 600 MG
     Route: 058
  11. DUPLAMIN [Concomitant]
     Dosage: 300 MG, BIW
     Route: 058

REACTIONS (3)
  - Pneumonia [Recovered/Resolved]
  - Urinary tract infection [Recovered/Resolved]
  - Off label use [Unknown]
